FAERS Safety Report 10983380 (Version 3)
Quarter: 2016Q1

REPORT INFORMATION
  Report Type: Spontaneous
  Country: US (occurrence: US)
  Receive Date: 20150403
  Receipt Date: 20160125
  Transmission Date: 20160525
  Serious: No
  Sender: FDA-Public Use
  Company Number: US-PFIZER INC-2015114988

PATIENT
  Age: 70 Year
  Sex: Male
  Weight: 70.3 kg

DRUGS (6)
  1. SUTENT [Suspect]
     Active Substance: SUNITINIB MALATE
     Dosage: UNK
  2. SUTENT [Suspect]
     Active Substance: SUNITINIB MALATE
     Dosage: UNK
  3. SUTENT [Suspect]
     Active Substance: SUNITINIB MALATE
     Dosage: UNK
     Dates: start: 2005, end: 2015
  4. NEXIUM [Concomitant]
     Active Substance: ESOMEPRAZOLE MAGNESIUM
  5. SUTENT [Suspect]
     Active Substance: SUNITINIB MALATE
     Indication: RENAL CELL CARCINOMA
     Dosage: 50 MG, 2WKS ON/1WK OFF
     Dates: start: 2005
  6. NEURONTIN [Concomitant]
     Active Substance: GABAPENTIN

REACTIONS (3)
  - Diarrhoea [Unknown]
  - Renal cell carcinoma [Unknown]
  - Disease progression [Unknown]
